FAERS Safety Report 15830324 (Version 1)
Quarter: 2019Q1

REPORT INFORMATION
  Report Type: Spontaneous
  Country: US (occurrence: US)
  Receive Date: 20190115
  Receipt Date: 20190115
  Transmission Date: 20190417
  Serious: No
  Sender: FDA-Public Use
  Company Number: US-REGENERON PHARMACEUTICALS, INC.-2018-38474

PATIENT

DRUGS (2)
  1. EYLEA [Suspect]
     Active Substance: AFLIBERCEPT
     Indication: DIABETIC RETINAL OEDEMA
     Dosage: DOSE ^AS PROVIDED^ EVERY 2-3 MONTHS,IN BOTH EYES, LAST DOSE
     Route: 031
     Dates: start: 20170818, end: 20170818
  2. EYLEA [Suspect]
     Active Substance: AFLIBERCEPT
     Indication: DIABETIC RETINOPATHY
     Dosage: DOSE ^AS PROVIDED^ EVERY 2-3 MONTHS, IN BOTH EYES
     Route: 031
     Dates: start: 20161110

REACTIONS (1)
  - Product dose omission [Unknown]

NARRATIVE: CASE EVENT DATE: 20171019
